FAERS Safety Report 15897231 (Version 3)
Quarter: 2019Q1

REPORT INFORMATION
  Report Type: Report from Study
  Country: US (occurrence: US)
  Receive Date: 20190131
  Receipt Date: 20190315
  Transmission Date: 20190417
  Serious: No
  Sender: FDA-Public Use
  Company Number: PHEH2019US004395

PATIENT
  Sex: Female

DRUGS (1)
  1. COSENTYX [Suspect]
     Active Substance: SECUKINUMAB
     Indication: PSORIASIS
     Dosage: UNK
     Route: 058

REACTIONS (6)
  - Fatigue [Unknown]
  - Drug ineffective [Unknown]
  - Insomnia [Unknown]
  - Throat irritation [Unknown]
  - Haemoptysis [Unknown]
  - Visual impairment [Unknown]
